FAERS Safety Report 6745182-1 (Version None)
Quarter: 2010Q2

REPORT INFORMATION
  Report Type: 
  Country: None (occurrence: None)
  Receive Date: 20100526
  Receipt Date: 20100511
  Transmission Date: 20101027
  Serious: Yes (Death, Life-Threatening, Other)
  Sender: FDA-Public Use
  Company Number: MC201000153

PATIENT
  Age: 56 Year
  Sex: Female

DRUGS (4)
  1. ANGIOMAX [Suspect]
     Indication: INTRA-AORTIC BALLOON PLACEMENT
     Dosage: INTRAVENOUS
     Route: 042
  2. ANGIOMAX [Suspect]
     Indication: THROMBOSIS
     Dosage: INTRAVENOUS
     Route: 042
  3. COUMADIN [Concomitant]
  4. HEPARIN [Concomitant]

REACTIONS (10)
  - CARDIAC OUTPUT DECREASED [None]
  - CARDIAC TAMPONADE [None]
  - CARDIO-RESPIRATORY ARREST [None]
  - CARDIOGENIC SHOCK [None]
  - ENTEROCOCCAL INFECTION [None]
  - MEDIASTINITIS [None]
  - PERIPHERAL ISCHAEMIA [None]
  - POST PROCEDURAL HAEMORRHAGE [None]
  - THROMBOSIS [None]
  - TRANSPLANT REJECTION [None]
